FAERS Safety Report 14260031 (Version 2)
Quarter: 2017Q4

REPORT INFORMATION
  Report Type: Spontaneous
  Country: US (occurrence: US)
  Receive Date: 20171207
  Receipt Date: 20171207
  Transmission Date: 20180321
  Serious: No
  Sender: FDA-Public Use
  Company Number: US-VIFOR (INTERNATIONAL) INC.-VIT-2017-09652

PATIENT
  Sex: Male

DRUGS (14)
  1. VELTASSA [Suspect]
     Active Substance: PATIROMER
     Indication: HYPERKALAEMIA
     Route: 048
     Dates: start: 20160809
  2. FUROSEMIDE. [Concomitant]
     Active Substance: FUROSEMIDE
  3. ERGOCALCIFEROL. [Concomitant]
     Active Substance: ERGOCALCIFEROL
  4. DILTIAZEM HYDROCHLORIDE. [Concomitant]
     Active Substance: DILTIAZEM HYDROCHLORIDE
  5. CYANOCOBALAMIN. [Concomitant]
     Active Substance: CYANOCOBALAMIN
  6. TOCOPHEROL [Concomitant]
     Active Substance: TOCOPHEROL
  7. GABAPENTIN. [Concomitant]
     Active Substance: GABAPENTIN
  8. XARELTO [Concomitant]
     Active Substance: RIVAROXABAN
  9. COLECALCIFEROL~~PHYTOMENADIONE~~CALCIUM [Concomitant]
  10. CALCITRATE [Concomitant]
     Active Substance: CALCIUM CITRATE
  11. CYANOCOBALAMIN. [Concomitant]
     Active Substance: CYANOCOBALAMIN
  12. EPOGEN [Concomitant]
     Active Substance: ERYTHROPOIETIN
  13. FLOMAX [Concomitant]
     Active Substance: TAMSULOSIN HYDROCHLORIDE
  14. DOXYCYCLINE HYCLATE. [Concomitant]
     Active Substance: DOXYCYCLINE HYCLATE

REACTIONS (1)
  - Infection [Unknown]
